FAERS Safety Report 7514761-6 (Version None)
Quarter: 2011Q2

REPORT INFORMATION
  Report Type: 
  Country: None (occurrence: None)
  Receive Date: 20110601
  Receipt Date: 20110523
  Transmission Date: 20111010
  Serious: Yes (Hospitalization)
  Sender: FDA-Public Use
  Company Number: US-US-EMD SERONO, INC.-7006077

PATIENT
  Sex: Female

DRUGS (6)
  1. HEART PILL [Concomitant]
  2. ANXIETY PILLS [Concomitant]
     Indication: ANXIETY
  3. STEROID INFUSIONS [Concomitant]
  4. REBIF [Suspect]
     Indication: MULTIPLE SCLEROSIS
     Route: 058
     Dates: start: 20100223
  5. NAPROXEN (ALEVE) [Concomitant]
     Indication: PREMEDICATION
  6. WELLBUTRIN XL [Concomitant]
     Indication: DEPRESSION
     Dates: end: 20100101

REACTIONS (7)
  - ANXIETY [None]
  - SUICIDAL IDEATION [None]
  - DRUG ABUSE [None]
  - SUICIDE ATTEMPT [None]
  - DEPRESSION [None]
  - MUSCLE SPASMS [None]
  - ASTHENIA [None]
